FAERS Safety Report 20730160 (Version 1)
Quarter: 2022Q2

REPORT INFORMATION
  Report Type: Spontaneous
  Country: FR (occurrence: FR)
  Receive Date: 20220420
  Receipt Date: 20220420
  Transmission Date: 20220721
  Serious: Yes (Life-Threatening, Other)
  Sender: FDA-Public Use
  Company Number: None

PATIENT
  Age: 46 Year
  Sex: Female
  Weight: 71 kg

DRUGS (2)
  1. TAHOR [Interacting]
     Active Substance: ATORVASTATIN CALCIUM
     Indication: Cerebrovascular accident
     Dosage: 80 MG, 1X/DAY, EVENING
     Route: 048
     Dates: start: 20220304, end: 20220320
  2. TICAGRELOR [Interacting]
     Active Substance: TICAGRELOR
     Indication: Cerebrovascular accident
     Dosage: 90 MG, 2X/DAY, MORNING AND EVENING
     Route: 048
     Dates: start: 20220224, end: 20220326

REACTIONS (3)
  - Atrioventricular block second degree [Recovered/Resolved]
  - Atrioventricular block complete [Recovered/Resolved]
  - Drug interaction [Unknown]

NARRATIVE: CASE EVENT DATE: 20220318
